FAERS Safety Report 5949991-8 (Version None)
Quarter: 2008Q4

REPORT INFORMATION
  Report Type: 
  Country: None (occurrence: None)
  Receive Date: 20081021
  Receipt Date: 20071112
  Transmission Date: 20090506
  Serious: Yes (Other)
  Sender: FDA-Public Use
  Company Number: HQWYE394122OCT03

PATIENT
  Sex: Female

DRUGS (1)
  1. PREMARIN [Suspect]
     Dosage: UNSPECIFIED DOSAGE, DAILY FOR A NUMBER OF YEARS, ORAL
     Route: 048

REACTIONS (3)
  - BREAST CANCER [None]
  - BREAST NEOPLASM [None]
  - OVARIAN CANCER [None]
